FAERS Safety Report 5468422-8 (Version None)
Quarter: 2007Q3

REPORT INFORMATION
  Report Type: 
  Country: None (occurrence: None)
  Receive Date: 20070926
  Receipt Date: 20070920
  Transmission Date: 20080115
  Serious: Yes (Other)
  Sender: FDA-Public Use
  Company Number: ZA-BRISTOL-MYERS SQUIBB COMPANY-13916085

PATIENT
  Age: 8 Year
  Sex: Male
  Weight: 24 kg

DRUGS (8)
  1. ATAZANAVIR SULFATE [Suspect]
     Indication: HIV INFECTION
     Route: 048
     Dates: start: 20050217
  2. STAVUDINE [Suspect]
     Indication: HIV INFECTION
     Route: 048
     Dates: start: 20050217
  3. LAMIVUDINE [Suspect]
     Indication: HIV INFECTION
     Route: 048
     Dates: start: 20050217
  4. RITONAVIR [Suspect]
     Indication: HIV INFECTION
     Route: 048
     Dates: start: 20050217
  5. BACTRIM [Concomitant]
  6. VITAMIN CAP [Concomitant]
  7. EPILIM [Concomitant]
  8. PROCUTAN [Concomitant]

REACTIONS (1)
  - BLOOD BILIRUBIN UNCONJUGATED INCREASED [None]
